FAERS Safety Report 19922428 (Version 1)
Quarter: 2021Q4

REPORT INFORMATION
  Report Type: Spontaneous
  Country: US (occurrence: US)
  Receive Date: 20211005
  Receipt Date: 20211005
  Transmission Date: 20220303
  Serious: No
  Sender: FDA-Public Use
  Company Number: US-SA-SAC20210930000281

PATIENT
  Sex: Male

DRUGS (13)
  1. DUPIXENT [Suspect]
     Active Substance: DUPILUMAB
     Dosage: 1 DF, QOW
     Route: 058
  2. ALBUTEROL [Concomitant]
     Active Substance: ALBUTEROL
     Dosage: UNK
  3. BENZONATATE [Concomitant]
     Active Substance: BENZONATATE
     Dosage: 100 MG
  4. BRETRA [Concomitant]
     Dosage: 10 MG
  5. CETIRIZINE HYDROCHLORIDE [Concomitant]
     Active Substance: CETIRIZINE HYDROCHLORIDE
     Dosage: 300 MG
  6. FAMOTIDINE [Concomitant]
     Active Substance: FAMOTIDINE
     Dosage: 25 MG
  7. FLUTICASONE [Concomitant]
     Active Substance: FLUTICASONE
     Dosage: 10 MG
  8. LISINOPRIL [Concomitant]
     Active Substance: LISINOPRIL
     Dosage: 500 MG
  9. METFORMIN HYDROCHLORIDE [Concomitant]
     Active Substance: METFORMIN HYDROCHLORIDE
     Dosage: 500 MG
  10. NAPROXEN [Concomitant]
     Active Substance: NAPROXEN
     Dosage: 10 MG
  11. OMEPRAZOLE [Concomitant]
     Active Substance: OMEPRAZOLE
     Dosage: 10 MG
  12. SIMVASTATIN [Concomitant]
     Active Substance: SIMVASTATIN
     Dosage: 10 MG
  13. HYDROCHLOROTHIAZIDE [Concomitant]
     Active Substance: HYDROCHLOROTHIAZIDE
     Dosage: UNK

REACTIONS (1)
  - Pruritus [Recovered/Resolved]
